FAERS Safety Report 24369613 (Version 1)
Quarter: 2024Q3

REPORT INFORMATION
  Report Type: Report from Study
  Country: DE (occurrence: DE)
  Receive Date: 20240927
  Receipt Date: 20240927
  Transmission Date: 20241016
  Serious: Yes (Death, Other)
  Sender: AUROBINDO
  Company Number: DE-AUROBINDO-AUR-APL-2024-047466

PATIENT
  Sex: Male

DRUGS (4)
  1. MELPHALAN [Suspect]
     Active Substance: MELPHALAN
     Indication: Mantle cell lymphoma stage IV
     Dosage: 140 MG/M2 (HIGH-DOSE)
     Route: 065
  2. CYCLOPHOSPHAMIDE [Suspect]
     Active Substance: CYCLOPHOSPHAMIDE
     Indication: Mantle cell lymphoma stage IV
     Dosage: 120 MILLIGRAM/KILOGRAM (HIGH-DOSE)
     Route: 065
  3. CYTARABINE [Suspect]
     Active Substance: CYTARABINE
     Indication: Mantle cell lymphoma stage IV
     Dosage: 6000 MG/M2 (HIGH-DOSE)
     Route: 065
  4. ETOPOSIDE [Suspect]
     Active Substance: ETOPOSIDE
     Indication: Mantle cell lymphoma stage IV
     Dosage: 800 MG/M2 (HIGH-DOSE)
     Route: 065

REACTIONS (2)
  - Pneumonitis [Fatal]
  - Toxicity to various agents [Fatal]
